FAERS Safety Report 5375176-2 (Version None)
Quarter: 2007Q2

REPORT INFORMATION
  Report Type: 
  Country: None (occurrence: None)
  Receive Date: 20070629
  Receipt Date: 20060508
  Transmission Date: 20071010
  Serious: Yes (Other)
  Sender: FDA-Public Use
  Company Number: US-ASTRAZENECA-2006UW09381

PATIENT
  Age: 510 Month
  Sex: Female
  Weight: 105 kg

DRUGS (2)
  1. NOLVADEX [Suspect]
     Indication: BREAST CANCER
     Route: 048
     Dates: start: 20050601, end: 20060313
  2. TRIPTORELIN [Suspect]
     Indication: BREAST CANCER
     Dosage: EVERY 28 DAYS
     Route: 030
     Dates: start: 20050601, end: 20060307

REACTIONS (1)
  - PULMONARY EMBOLISM [None]
